APPROVED DRUG PRODUCT: BILIVIST
Active Ingredient: IPODATE SODIUM
Strength: 500MG
Dosage Form/Route: CAPSULE;ORAL
Application: A087768 | Product #001
Applicant: BAYER HEALTHCARE PHARMACEUTICALS INC
Approved: Aug 11, 1982 | RLD: No | RS: No | Type: DISCN